FAERS Safety Report 17143274 (Version 1)
Quarter: 2019Q4

REPORT INFORMATION
  Report Type: Spontaneous
  Country: US (occurrence: US)
  Receive Date: 20191211
  Receipt Date: 20191211
  Transmission Date: 20200122
  Serious: No
  Sender: FDA-Public Use
  Company Number: US-AMERICAN REGENT INC-20190096

PATIENT
  Age: 15 Year
  Sex: Female

DRUGS (3)
  1. VENOFER [Suspect]
     Active Substance: IRON SUCROSE
  2. VENOFER [Suspect]
     Active Substance: IRON SUCROSE
  3. VENOFER [Suspect]
     Active Substance: IRON SUCROSE
     Indication: PRODUCT USED FOR UNKNOWN INDICATION
     Dosage: 300 MG/100 ML  INFUSED OVER60 MINUTES
     Route: 042
     Dates: start: 20181218, end: 20181218

REACTIONS (3)
  - Diarrhoea [Unknown]
  - Myalgia [Unknown]
  - Product preparation issue [Unknown]

NARRATIVE: CASE EVENT DATE: 20181218
